FAERS Safety Report 18875723 (Version 1)
Quarter: 2021Q1

REPORT INFORMATION
  Report Type: Report from Study
  Country: US (occurrence: US)
  Receive Date: 20210210
  Receipt Date: 20210210
  Transmission Date: 20210420
  Serious: No
  Sender: FDA-Public Use
  Company Number: US-B.I. PHARMACEUTICALS,INC./RIDGEFIELD-2020-BI-053988

PATIENT
  Age: 51 Year
  Sex: Male

DRUGS (3)
  1. JARDIANCE [Suspect]
     Active Substance: EMPAGLIFLOZIN
     Indication: CARDIAC FAILURE
     Dosage: 1/2 TABLET (=5MG) PO ONCE DAILY
     Route: 048
     Dates: start: 202010
  2. SILDENAFIL. [Concomitant]
     Active Substance: SILDENAFIL
     Indication: PRODUCT USED FOR UNKNOWN INDICATION
  3. JARDIANCE [Suspect]
     Active Substance: EMPAGLIFLOZIN
     Indication: CARDIOVASCULAR DISORDER
     Dosage: 10 MG PO ONCE A DAY
     Route: 065
     Dates: start: 2020, end: 2020

REACTIONS (13)
  - Product prescribing error [Not Recovered/Not Resolved]
  - Nausea [Recovered/Resolved]
  - Tremor [Recovered/Resolved]
  - Peripheral coldness [Recovered/Resolved]
  - Hyperhidrosis [Recovered/Resolved]
  - Glucose urine [Unknown]
  - Burning sensation [Recovered/Resolved]
  - Oropharyngeal discomfort [Recovered/Resolved]
  - Blood ketone body [Unknown]
  - Fatigue [Not Recovered/Not Resolved]
  - Polydipsia [Not Recovered/Not Resolved]
  - Off label use [Not Recovered/Not Resolved]
  - Feeling of body temperature change [Not Recovered/Not Resolved]

NARRATIVE: CASE EVENT DATE: 2020
